FAERS Safety Report 8570576-1 (Version None)
Quarter: 2012Q3

REPORT INFORMATION
  Report Type: 
  Country: None (occurrence: None)
  Receive Date: 20120804
  Receipt Date: 20120723
  Transmission Date: 20120928
  Serious: No
  Sender: FDA-Public Use
  Company Number: US-009507513-1207USA010362

PATIENT

DRUGS (6)
  1. PEGASYS [Suspect]
     Dosage: UNK
     Dates: start: 20090901, end: 20100301
  2. PEGASYS [Suspect]
     Dosage: UNK
     Dates: start: 20120403
  3. PEGASYS [Suspect]
     Indication: HEPATITIS C
     Dosage: UNK
     Dates: start: 20020601, end: 20030501
  4. REBETOL [Suspect]
     Indication: HEPATITIS C
     Dosage: UNK
     Dates: start: 20020601, end: 20030501
  5. REBETOL [Suspect]
     Dosage: UNK
     Dates: start: 20120403
  6. REBETOL [Suspect]
     Dosage: UNK
     Dates: start: 20090901, end: 20100301

REACTIONS (2)
  - DRUG INEFFECTIVE [None]
  - HEPATITIS C [None]
